FAERS Safety Report 17635765 (Version 1)
Quarter: 2020Q2

REPORT INFORMATION
  Report Type: Spontaneous
  Country: US (occurrence: US)
  Receive Date: 20200407
  Receipt Date: 20200407
  Transmission Date: 20200713
  Serious: Yes (Hospitalization, Other)
  Sender: FDA-Public Use
  Company Number: US-TEVA-2020-US-1221157

PATIENT
  Age: 56 Year
  Sex: Female

DRUGS (9)
  1. VENLAFAXINE [Concomitant]
     Active Substance: VENLAFAXINE HYDROCHLORIDE
  2. ALPRAZOLAM. [Concomitant]
     Active Substance: ALPRAZOLAM
  3. CYANOCOBALAM [Concomitant]
     Active Substance: CYANOCOBALAMIN
  4. FISH OIL [Concomitant]
     Active Substance: FISH OIL
  5. KETOROLAC SOL [Concomitant]
     Route: 065
  6. COPAXONE [Suspect]
     Active Substance: GLATIRAMER ACETATE
     Indication: MULTIPLE SCLEROSIS
     Route: 058
     Dates: start: 20130318
  7. VITAMIN B12 [Concomitant]
     Active Substance: CYANOCOBALAMIN
  8. MELOXICAM. [Concomitant]
     Active Substance: MELOXICAM
  9. TRAMADOL. [Concomitant]
     Active Substance: TRAMADOL

REACTIONS (4)
  - Multiple sclerosis relapse [Unknown]
  - Visual impairment [Unknown]
  - Hypoaesthesia [Unknown]
  - Blindness unilateral [Unknown]

NARRATIVE: CASE EVENT DATE: 2016
